FAERS Safety Report 25598286 (Version 1)
Quarter: 2025Q3

REPORT INFORMATION
  Report Type: Spontaneous
  Country: US (occurrence: US)
  Receive Date: 20250723
  Receipt Date: 20250723
  Transmission Date: 20251021
  Serious: No
  Sender: INCYTE
  Company Number: US-EVENT-003572

PATIENT
  Age: 66 Year

DRUGS (1)
  1. OPZELURA [Suspect]
     Active Substance: RUXOLITINIB PHOSPHATE
     Indication: Product used for unknown indication
     Dosage: 1.5 PERCENT, THIN LAYER TO AFFECTED AREA(S) OF THE FACE BID
     Route: 065

REACTIONS (2)
  - Application site discolouration [Unknown]
  - Drug ineffective [Unknown]
